FAERS Safety Report 15403304 (Version 1)
Quarter: 2018Q3

REPORT INFORMATION
  Report Type: Spontaneous
  Country: FR (occurrence: FR)
  Receive Date: 20180919
  Receipt Date: 20180919
  Transmission Date: 20181010
  Serious: Yes (Life-Threatening)
  Sender: FDA-Public Use
  Company Number: FR-LUNDBECK-DKLU2054153

PATIENT
  Sex: Male

DRUGS (8)
  1. CLOBAZAM [Suspect]
     Active Substance: CLOBAZAM
     Indication: OVERDOSE
  2. PARACETAMOL [Suspect]
     Active Substance: ACETAMINOPHEN
     Indication: OVERDOSE
  3. OXYPHENBUTAZONE [Suspect]
     Active Substance: OXYPHENBUTAZONE
     Indication: SUICIDE ATTEMPT
     Dosage: OVERDOSE
     Route: 065
  4. DISULFIRAM. [Suspect]
     Active Substance: DISULFIRAM
     Indication: OVERDOSE
  5. CLOBAZAM [Suspect]
     Active Substance: CLOBAZAM
     Indication: SUICIDE ATTEMPT
     Dosage: OVERDOSE
     Route: 065
  6. OXYPHENBUTAZONE [Suspect]
     Active Substance: OXYPHENBUTAZONE
     Indication: OVERDOSE
  7. DISULFIRAM. [Suspect]
     Active Substance: DISULFIRAM
     Indication: SUICIDE ATTEMPT
     Dosage: OVERDOSE
     Route: 065
  8. PARACETAMOL [Suspect]
     Active Substance: ACETAMINOPHEN
     Indication: SUICIDE ATTEMPT
     Dosage: OVERDOSE
     Route: 065

REACTIONS (2)
  - Suicide attempt [Unknown]
  - Toxicity to various agents [Unknown]
